FAERS Safety Report 5836085-5 (Version None)
Quarter: 2008Q3

REPORT INFORMATION
  Report Type: 
  Country: None (occurrence: None)
  Receive Date: 20080805
  Receipt Date: 20080722
  Transmission Date: 20090109
  Serious: Yes (Other)
  Sender: FDA-Public Use
  Company Number: NL-1166669

PATIENT
  Age: 53 Year
  Sex: Male

DRUGS (1)
  1. FLUORESCITE (FLUORESCEIN SODIUM) 10 % INJECTION LOT# 733F SOLUTION FOR [Suspect]
     Dosage: INTRAVENOUS BOLUS
     Route: 040
     Dates: start: 20080704, end: 20080704

REACTIONS (6)
  - BRADYCARDIA [None]
  - HYPOTENSION [None]
  - LOSS OF CONSCIOUSNESS [None]
  - NAUSEA [None]
  - SYNCOPE [None]
  - VOMITING [None]
